FAERS Safety Report 13937223 (Version 2)
Quarter: 2017Q4

REPORT INFORMATION
  Report Type: Report from Study
  Country: NL (occurrence: NL)
  Receive Date: 20170905
  Receipt Date: 20171122
  Transmission Date: 20180320
  Serious: Yes (Hospitalization)
  Sender: FDA-Public Use
  Company Number: NL-BAYER-2017-155061

PATIENT
  Age: 75 Year
  Sex: Male
  Weight: 56 kg

DRUGS (2)
  1. PACLITAXEL. [Suspect]
     Active Substance: PACLITAXEL
     Indication: GASTROOESOPHAGEAL CANCER
     Dosage: DAILY DOSE 80 MG/M2 ON DAY 1,8,15
     Route: 042
     Dates: start: 20170718
  2. REGORAFENIB [Suspect]
     Active Substance: REGORAFENIB
     Indication: GASTROOESOPHAGEAL CANCER
     Dosage: 120 MG, QD
     Route: 048
     Dates: start: 20170718, end: 20170807

REACTIONS (11)
  - Dyspnoea [Recovered/Resolved]
  - Pyrexia [Recovered/Resolved]
  - Diarrhoea [Not Recovered/Not Resolved]
  - Hypophosphataemia [None]
  - Infection [None]
  - Pneumonia [Recovered/Resolved]
  - Anaemia [Recovered/Resolved]
  - Hypokalaemia [None]
  - Pneumonia [Recovered/Resolved]
  - Pulmonary cavitation [None]
  - Malaise [Recovered/Resolved]

NARRATIVE: CASE EVENT DATE: 20170807
